FAERS Safety Report 8818291 (Version 1)
Quarter: 2012Q4

REPORT INFORMATION
  Report Type: 
  Country: JP (occurrence: JP)
  Receive Date: 20121001
  Receipt Date: 20121001
  Transmission Date: 20130627
  Serious: Yes (Life-Threatening, Other)
  Sender: FDA-Public Use
  Company Number: JP-ASTRAZENECA-2012SE74997

PATIENT

DRUGS (1)
  1. ANAPEINE [Suspect]
     Dosage: 7.5 MG/ML
     Route: 065

REACTIONS (1)
  - Anaphylactic shock [Recovered/Resolved]
